FAERS Safety Report 10377040 (Version 1)
Quarter: 2014Q3

REPORT INFORMATION
  Report Type: Spontaneous
  Country: US (occurrence: US)
  Receive Date: 20140812
  Receipt Date: 20140812
  Transmission Date: 20150326
  Serious: Yes (Other)
  Sender: FDA-Public Use
  Company Number: US-BEH-2014044349

PATIENT
  Age: 5 Year
  Sex: Male
  Weight: 16.2 kg

DRUGS (3)
  1. CYTOGAM [Suspect]
     Active Substance: HUMAN CYTOMEGALOVIRUS IMMUNE GLOBULIN
     Dates: start: 20140728
  2. GANCICLOVIR [Suspect]
     Active Substance: GANCICLOVIR
  3. CYTOGAM [Suspect]
     Active Substance: HUMAN CYTOMEGALOVIRUS IMMUNE GLOBULIN
     Dates: start: 20140725

REACTIONS (1)
  - Cytomegalovirus test positive [Unknown]
